FAERS Safety Report 9870017 (Version 2)
Quarter: 2014Q1

REPORT INFORMATION
  Report Type: Spontaneous
  Country: US (occurrence: US)
  Receive Date: 20140205
  Receipt Date: 20140207
  Transmission Date: 20141002
  Serious: No
  Sender: FDA-Public Use
  Company Number: US-PFIZER INC-2014032439

PATIENT
  Age: 29 Year
  Sex: Female
  Weight: 52.6 kg

DRUGS (1)
  1. DEPO-SUBQ PROVERA 104 [Suspect]
     Indication: MENSTRUATION IRREGULAR
     Dosage: UNK
     Route: 058
     Dates: start: 201310

REACTIONS (2)
  - Injection site induration [Not Recovered/Not Resolved]
  - Intentional drug misuse [Unknown]
